FAERS Safety Report 6256007-5 (Version None)
Quarter: 2009Q3

REPORT INFORMATION
  Report Type: 
  Country: None (occurrence: None)
  Receive Date: 20090706
  Receipt Date: 20090627
  Transmission Date: 20100115
  Serious: Yes (Hospitalization, Other)
  Sender: FDA-Public Use
  Company Number: US-CELGENEUS-163-50794-09062184

PATIENT
  Sex: Male

DRUGS (1)
  1. VIDAZA [Suspect]
     Route: 065

REACTIONS (5)
  - GASTROINTESTINAL INFLAMMATION [None]
  - HAEMOGLOBIN DECREASED [None]
  - HYPOTENSION [None]
  - SYNCOPE [None]
  - WHITE BLOOD CELL COUNT DECREASED [None]
